FAERS Safety Report 24204880 (Version 1)
Quarter: 2024Q3

REPORT INFORMATION
  Report Type: Spontaneous
  Country: NL (occurrence: NL)
  Receive Date: 20240813
  Receipt Date: 20240813
  Transmission Date: 20241016
  Serious: Yes (Other)
  Sender: ACCORD
  Company Number: None

PATIENT
  Age: 58 Year
  Sex: Female
  Weight: 77 kg

DRUGS (2)
  1. ANASTROZOLE [Suspect]
     Active Substance: ANASTROZOLE
     Indication: Breast cancer
     Dosage: 1 X PER DAY 1 TABLET
     Dates: start: 20220103, end: 20240617
  2. LOSARTAN/HIDROCLOTIAZIDA [Concomitant]
     Dosage: COATED TABLET, 50/12.5 MG (MILLIGRAM)

REACTIONS (2)
  - Acute psychosis [Recovering/Resolving]
  - Thyroid function test abnormal [Recovering/Resolving]
